FAERS Safety Report 4883480-7 (Version None)
Quarter: 2006Q1

REPORT INFORMATION
  Report Type: 
  Country: None (occurrence: None)
  Receive Date: 20060113
  Receipt Date: 20060103
  Transmission Date: 20060701
  Serious: Yes (Disabling)
  Sender: FDA-Public Use
  Company Number: 2006002309

PATIENT
  Age: 53 Year
  Sex: Male
  Weight: 118 kg

DRUGS (8)
  1. LYRICA [Suspect]
     Indication: DEPRESSION
     Dosage: 300 MG (300 MG, 1 IN 1 D), ORAL
     Route: 048
  2. LYRICA [Suspect]
     Indication: MIGRAINE
     Dosage: 300 MG (300 MG, 1 IN 1 D), ORAL
     Route: 048
  3. CELEBREX [Concomitant]
  4. NATRILIX (INDAPAMIDE) [Concomitant]
  5. AVAPRO HCT (HYDROCHLOROTHIAZIDE, IRBESARTAN) [Concomitant]
  6. COVERSYL (PERINDOPRIL) [Concomitant]
  7. ATENOLOL [Concomitant]
  8. DIAZEPAM [Concomitant]

REACTIONS (2)
  - DRUG INEFFECTIVE [None]
  - MIGRAINE [None]
